FAERS Safety Report 12537426 (Version 3)
Quarter: 2016Q3

REPORT INFORMATION
  Report Type: Report from Study
  Country: DE (occurrence: DE)
  Receive Date: 20160707
  Receipt Date: 20160805
  Transmission Date: 20161109
  Serious: Yes (Death, Life-Threatening, Hospitalization, Other)
  Sender: FDA-Public Use
  Company Number: PHHY2016DE093125

PATIENT
  Sex: Male
  Weight: 55 kg

DRUGS (9)
  1. CALCIPARINE [Concomitant]
     Active Substance: HEPARIN CALCIUM
     Indication: PRODUCT USED FOR UNKNOWN INDICATION
     Dosage: 1-0-1
     Route: 058
  2. DEXAMETHASONE. [Concomitant]
     Active Substance: DEXAMETHASONE
     Indication: ANALGESIC THERAPY
     Dosage: 4 MG, QD
     Route: 048
     Dates: start: 20151118
  3. NOVAMINSULFON [Concomitant]
     Active Substance: METAMIZOLE
     Indication: ANALGESIC THERAPY
     Dosage: 500 MG, QD
     Route: 048
     Dates: start: 20151118, end: 2016
  4. AFINITOR [Suspect]
     Active Substance: EVEROLIMUS
     Indication: RENAL CELL CARCINOMA
     Dosage: 10 MG, QD
     Route: 048
     Dates: start: 20151118
  5. DUROGESIC [Concomitant]
     Active Substance: FENTANYL
     Indication: PRODUCT USED FOR UNKNOWN INDICATION
     Dosage: 25 TO 75 MG PATCH DAILY
     Route: 065
     Dates: start: 20151202, end: 2016
  6. L-THYROXINE [Concomitant]
     Active Substance: LEVOTHYROXINE
     Indication: PRODUCT USED FOR UNKNOWN INDICATION
     Dosage: 1 DF( 1-0-0)
     Route: 048
  7. SALBUTAMOL [Concomitant]
     Active Substance: ALBUTEROL
     Indication: PRODUCT USED FOR UNKNOWN INDICATION
     Dosage: 4 DF, QID (1-1-1-1)
     Route: 065
  8. PANTOZOL [Concomitant]
     Active Substance: PANTOPRAZOLE SODIUM
     Indication: PRODUCT USED FOR UNKNOWN INDICATION
     Dosage: 1-0-0
     Route: 065
  9. N-ACETYLCYSTEINE [Concomitant]
     Active Substance: ACETYLCYSTEINE
     Indication: PRODUCT USED FOR UNKNOWN INDICATION
     Dosage: 1 DF (1-0-0)
     Route: 065

REACTIONS (28)
  - General physical health deterioration [Unknown]
  - Pulmonary congestion [Unknown]
  - Diplopia [Unknown]
  - Meningitis [Fatal]
  - Cachexia [Unknown]
  - Fatigue [Unknown]
  - Oedema peripheral [Unknown]
  - Respiratory failure [Unknown]
  - Dyspnoea [Unknown]
  - Hypoaesthesia [Unknown]
  - Sinusitis [Unknown]
  - Acute kidney injury [Unknown]
  - Dehydration [Unknown]
  - Mydriasis [Fatal]
  - Cough [Unknown]
  - Eye movement disorder [Unknown]
  - Bone marrow infiltration [Unknown]
  - Apnoea [Fatal]
  - Ophthalmoplegia [Fatal]
  - Carotid artery stenosis [Unknown]
  - Facial paralysis [Fatal]
  - Gastrointestinal sounds abnormal [Unknown]
  - Pyrexia [Unknown]
  - Interstitial lung disease [Unknown]
  - Sinus tachycardia [Unknown]
  - VIth nerve disorder [Unknown]
  - Eyelid ptosis [Unknown]
  - Decubitus ulcer [Unknown]

NARRATIVE: CASE EVENT DATE: 20160610
